FAERS Safety Report 9797682 (Version 9)
Quarter: 2016Q1

REPORT INFORMATION
  Report Type: Report from Study
  Country: DE (occurrence: DE)
  Receive Date: 20140106
  Receipt Date: 20160219
  Transmission Date: 20160526
  Serious: Yes (Death, Hospitalization, Other)
  Sender: FDA-Public Use
  Company Number: DE-ROCHE-1329071

PATIENT
  Age: 68 Year
  Sex: Female
  Weight: 86.6 kg

DRUGS (15)
  1. CARBOPLATIN. [Concomitant]
     Active Substance: CARBOPLATIN
     Dosage: 4 CYCLES
     Route: 042
     Dates: start: 201103, end: 201103
  2. GEMZAR [Concomitant]
     Active Substance: GEMCITABINE HYDROCHLORIDE
     Route: 065
     Dates: start: 20121002, end: 20121002
  3. BEVACIZUMAB [Suspect]
     Active Substance: BEVACIZUMAB
     Indication: OVARIAN CANCER
     Dosage: 6 CYCLES
     Route: 042
     Dates: start: 201208, end: 201212
  4. BEVACIZUMAB [Suspect]
     Active Substance: BEVACIZUMAB
     Route: 042
     Dates: start: 20121002, end: 20121002
  5. DOXORUBICIN [Suspect]
     Active Substance: DOXORUBICIN
     Indication: OVARIAN CANCER
     Dosage: 3 CYCLES
     Route: 065
     Dates: start: 201303, end: 201306
  6. DOXORUBICIN [Suspect]
     Active Substance: DOXORUBICIN
     Dosage: 2CYCLES
     Route: 065
     Dates: start: 201306
  7. TOPOTECAN [Suspect]
     Active Substance: TOPOTECAN\TOPOTECAN HYDROCHLORIDE
     Indication: OVARIAN CANCER
     Route: 065
     Dates: start: 201309
  8. GEMZAR [Concomitant]
     Active Substance: GEMCITABINE HYDROCHLORIDE
     Indication: OVARIAN CANCER
     Dosage: 6 CYCLES
     Route: 065
     Dates: start: 201208, end: 201212
  9. CARBOPLATIN. [Concomitant]
     Active Substance: CARBOPLATIN
     Indication: OVARIAN CANCER
     Dosage: 2 CYCLES
     Route: 042
     Dates: start: 201101
  10. CARBOPLATIN. [Concomitant]
     Active Substance: CARBOPLATIN
     Route: 042
     Dates: start: 20121002, end: 20121002
  11. BEVACIZUMAB [Suspect]
     Active Substance: BEVACIZUMAB
     Route: 042
     Dates: start: 20120912, end: 20120912
  12. CISPLATIN. [Suspect]
     Active Substance: CISPLATIN
     Indication: OVARIAN CANCER
     Dosage: 3 CYCLES
     Route: 065
     Dates: start: 201303, end: 201306
  13. CARBOPLATIN. [Concomitant]
     Active Substance: CARBOPLATIN
     Dosage: 6 CAYCLES
     Route: 042
     Dates: start: 201208, end: 201212
  14. GEMZAR [Concomitant]
     Active Substance: GEMCITABINE HYDROCHLORIDE
     Route: 065
     Dates: start: 20120912, end: 20120912
  15. CARBOPLATIN. [Concomitant]
     Active Substance: CARBOPLATIN
     Route: 042
     Dates: start: 20120912, end: 20120912

REACTIONS (7)
  - Respiratory failure [Recovered/Resolved]
  - Respiratory failure [Fatal]
  - Urinary tract obstruction [Unknown]
  - Pleural effusion [Fatal]
  - Ascites [Unknown]
  - Drug intolerance [Unknown]
  - Ileus [Fatal]

NARRATIVE: CASE EVENT DATE: 201208
